FAERS Safety Report 6649314-5 (Version None)
Quarter: 2010Q1

REPORT INFORMATION
  Report Type: 
  Country: None (occurrence: None)
  Receive Date: 20100324
  Receipt Date: 20100318
  Transmission Date: 20100710
  Serious: No
  Sender: FDA-Public Use
  Company Number: GB-ABBOTT-10P-167-0628082-00

PATIENT
  Sex: Male
  Weight: 150 kg

DRUGS (3)
  1. REDUCTIL 10MG [Suspect]
     Indication: OBESITY
     Route: 048
     Dates: start: 20091221, end: 20100115
  2. BECONASE [Concomitant]
     Indication: DRUG USE FOR UNKNOWN INDICATION
     Route: 045
  3. LORATADINE [Concomitant]
     Indication: DRUG USE FOR UNKNOWN INDICATION
     Dates: start: 20070401

REACTIONS (3)
  - CONDITION AGGRAVATED [None]
  - TIC [None]
  - TOURETTE'S DISORDER [None]
